FAERS Safety Report 6654967-1 (Version None)
Quarter: 2010Q1

REPORT INFORMATION
  Report Type: 
  Country: None (occurrence: None)
  Receive Date: 20100329
  Receipt Date: 20100319
  Transmission Date: 20100710
  Serious: No
  Sender: FDA-Public Use
  Company Number: US-BIOGENIDEC-2010BI009529

PATIENT
  Age: 37 Year
  Sex: Female

DRUGS (2)
  1. AVONEX [Suspect]
     Indication: MULTIPLE SCLEROSIS
     Route: 030
     Dates: start: 20071005, end: 20071031
  2. AVONEX [Suspect]
     Route: 030
     Dates: start: 20100319

REACTIONS (3)
  - INFLUENZA LIKE ILLNESS [None]
  - TREMOR [None]
  - VOMITING [None]
